FAERS Safety Report 4762156-0 (Version None)
Quarter: 2005Q3

REPORT INFORMATION
  Report Type: 
  Country: None (occurrence: None)
  Receive Date: 20050906
  Receipt Date: 20050906
  Transmission Date: 20060218
  Serious: Yes (Disabling)
  Sender: FDA-Public Use
  Company Number: None

PATIENT
  Age: 81 Year
  Sex: Male
  Weight: 83.0083 kg

DRUGS (1)
  1. LEVAQUIN [Suspect]
     Indication: BRONCHITIS
     Dosage: ONE TABLET DAILY   TWO TABLETS
     Dates: start: 20050826, end: 20050903

REACTIONS (2)
  - DIFFICULTY IN WALKING [None]
  - MYALGIA [None]
